FAERS Safety Report 12394711 (Version 1)
Quarter: 2016Q2

REPORT INFORMATION
  Report Type: Spontaneous
  Country: US (occurrence: US)
  Receive Date: 20160523
  Receipt Date: 20160523
  Transmission Date: 20160815
  Serious: No
  Sender: FDA-Public Use
  Company Number: US-NOVOPROD-443897

PATIENT
  Age: 15 Year
  Sex: Male

DRUGS (1)
  1. NORDITROPIN [Suspect]
     Active Substance: SOMATROPIN
     Indication: PRODUCT USED FOR UNKNOWN INDICATION
     Dosage: 2.2 MG, QD
     Route: 058
     Dates: start: 201208

REACTIONS (2)
  - Condition aggravated [Not Recovered/Not Resolved]
  - Pectus carinatum [Not Recovered/Not Resolved]

NARRATIVE: CASE EVENT DATE: 201411
